FAERS Safety Report 14763402 (Version 6)
Quarter: 2018Q3

REPORT INFORMATION
  Report Type: Report from Study
  Country: CA (occurrence: CA)
  Receive Date: 20180416
  Receipt Date: 20180903
  Transmission Date: 20181010
  Serious: Yes (Hospitalization, Other)
  Sender: FDA-Public Use
  Company Number: CA-BRISTOL-MYERS SQUIBB COMPANY-BMS-2018-031193

PATIENT
  Age: 76 Year
  Sex: Female

DRUGS (1)
  1. ABATACEPT [Suspect]
     Active Substance: ABATACEPT
     Indication: RHEUMATOID ARTHRITIS
     Dosage: 500 MG, Q4WK
     Route: 042
     Dates: start: 20171228, end: 20180321

REACTIONS (16)
  - Decreased appetite [Unknown]
  - Escherichia infection [Unknown]
  - Nausea [Not Recovered/Not Resolved]
  - Pyrexia [Unknown]
  - Musculoskeletal pain [Not Recovered/Not Resolved]
  - Fatigue [Unknown]
  - Productive cough [Unknown]
  - Malaise [Unknown]
  - Drug ineffective [Unknown]
  - Contusion [Unknown]
  - Vomiting [Not Recovered/Not Resolved]
  - Chills [Unknown]
  - Arthralgia [Unknown]
  - Urinary tract infection [Recovering/Resolving]
  - Influenza [Unknown]
  - Alopecia [Unknown]

NARRATIVE: CASE EVENT DATE: 20180330
